FAERS Safety Report 14822691 (Version 3)
Quarter: 2018Q4

REPORT INFORMATION
  Report Type: Spontaneous
  Country: JP (occurrence: JP)
  Receive Date: 20180427
  Receipt Date: 20181112
  Transmission Date: 20190204
  Serious: Yes (Other)
  Sender: FDA-Public Use
  Company Number: JP-PFIZER INC-2018165628

PATIENT
  Age: 77 Year
  Sex: Female
  Weight: 50 kg

DRUGS (11)
  1. IBRANCE [Suspect]
     Active Substance: PALBOCICLIB
     Dosage: 100 MG, DAILY
     Route: 048
     Dates: start: 20180216, end: 20180221
  2. FASLODEX [Concomitant]
     Active Substance: FULVESTRANT
     Dosage: 500 MG, 1X/DAY
     Route: 030
     Dates: start: 20171222
  3. IBRANCE [Suspect]
     Active Substance: PALBOCICLIB
     Dosage: 100 MG, DAILY
     Route: 048
     Dates: start: 20180126, end: 20180208
  4. MAGMITT [Concomitant]
     Active Substance: MAGNESIUM OXIDE
     Dosage: 500 MG, 2X/DAY
     Route: 048
     Dates: start: 20171222
  5. IBRANCE [Suspect]
     Active Substance: PALBOCICLIB
     Indication: BREAST CANCER RECURRENT
     Dosage: 125 MG, DAILY
     Route: 048
     Dates: start: 20171222, end: 20180105
  6. HALFDIGOXIN [Concomitant]
     Active Substance: DIGOXIN
     Dosage: 0.125 MG, 1X/DAY
     Route: 048
     Dates: start: 20171222
  7. PELEX [CAFFEINE;CHLORPHENAMINE MALEATE;PARACETAMOL;SALICYLAMIDE] [Concomitant]
     Dosage: 1 DF, 3X/DAY
     Route: 048
     Dates: start: 20180216
  8. HYSRON H [Concomitant]
     Active Substance: MEDROXYPROGESTERONE
     Dosage: 200 MG, 2X/DAY
     Route: 048
     Dates: start: 20171222, end: 20180119
  9. EQUA [Concomitant]
     Active Substance: VILDAGLIPTIN
     Dosage: 50 MG, 2X/DAY
     Route: 048
     Dates: start: 20171222
  10. AMARYL [Concomitant]
     Active Substance: GLIMEPIRIDE
     Dosage: 0.5 MG, 1X/DAY
     Route: 048
     Dates: start: 20171222
  11. CODEINE PHOSPHATE [Concomitant]
     Active Substance: CODEINE PHOSPHATE
     Dosage: 2 G, 3X/DAY
     Route: 048
     Dates: start: 20180221

REACTIONS (1)
  - Interstitial lung disease [Recovered/Resolved]

NARRATIVE: CASE EVENT DATE: 20180305
